FAERS Safety Report 24937859 (Version 1)
Quarter: 2025Q1

REPORT INFORMATION
  Report Type: Spontaneous
  Country: US (occurrence: None)
  Receive Date: 20250206
  Receipt Date: 20250206
  Transmission Date: 20250408
  Serious: Yes (Other)
  Sender: FDA-CTU
  Company Number: None

PATIENT
  Age: 78 Year
  Sex: Male
  Weight: 78.3 kg

DRUGS (2)
  1. XOPENEX HFA [Suspect]
     Active Substance: LEVALBUTEROL TARTRATE
     Indication: Wheezing
     Dosage: FREQUENCY : EVERY 4 HOURS;?
     Route: 055
     Dates: start: 20250204, end: 20250205
  2. XOPENEX HFA [Suspect]
     Active Substance: LEVALBUTEROL TARTRATE
     Indication: Cough

REACTIONS (4)
  - Secretion discharge [None]
  - Cough [None]
  - Bronchospasm [None]
  - Wheezing [None]

NARRATIVE: CASE EVENT DATE: 20250205
